FAERS Safety Report 13768776 (Version 1)
Quarter: 2017Q3

REPORT INFORMATION
  Report Type: Spontaneous
  Country: IN (occurrence: IN)
  Receive Date: 20170719
  Receipt Date: 20170719
  Transmission Date: 20171127
  Serious: Yes (Other)
  Sender: FDA-Public Use
  Company Number: IN-TORRENT-00001263

PATIENT
  Age: 22 Year
  Sex: Male

DRUGS (3)
  1. ARIPIPRAZOLE. [Suspect]
     Active Substance: ARIPIPRAZOLE
  2. ILOPERIDONE. [Suspect]
     Active Substance: ILOPERIDONE
  3. CLOZAPINE. [Suspect]
     Active Substance: CLOZAPINE

REACTIONS (5)
  - Sedation [Unknown]
  - Drug tolerance [Unknown]
  - Drug withdrawal syndrome [Unknown]
  - Constipation [Unknown]
  - Psychotic disorder [Unknown]
